FAERS Safety Report 10704368 (Version 1)
Quarter: 2015Q1

REPORT INFORMATION
  Report Type: Spontaneous
  Country: US (occurrence: US)
  Receive Date: 20150112
  Receipt Date: 20150112
  Transmission Date: 20150721
  Serious: No
  Sender: FDA-Public Use
  Company Number: US-SHIRE-US201409286

PATIENT
  Age: 67 Year
  Sex: Male
  Weight: 97.51 kg

DRUGS (2)
  1. LIALDA [Suspect]
     Active Substance: MESALAMINE
     Dosage: 4.8 G, 1X/DAY:QD (FOUR 1.2 G TABLETS/DAY)
     Route: 048
     Dates: start: 201409, end: 2014
  2. LIALDA [Suspect]
     Active Substance: MESALAMINE
     Indication: COLITIS ULCERATIVE
     Dosage: 2.4 G, 1X/DAY:QD (TWO 1.2 G TABLETS/DAY)
     Route: 048
     Dates: start: 2014

REACTIONS (1)
  - Dizziness [Unknown]

NARRATIVE: CASE EVENT DATE: 2014
